FAERS Safety Report 6819367-X (Version None)
Quarter: 2010Q3

REPORT INFORMATION
  Report Type: 
  Country: None (occurrence: None)
  Receive Date: 20100707
  Receipt Date: 20100701
  Transmission Date: 20110219
  Serious: Yes (Hospitalization)
  Sender: FDA-Public Use
  Company Number: JP-BAYER-201012316BYL

PATIENT
  Age: 77 Year
  Sex: Male
  Weight: 52 kg

DRUGS (10)
  1. NEXAVAR [Suspect]
     Indication: RENAL CELL CARCINOMA
     Dosage: TOTAL DAILY DOSE: 800 MG  UNIT DOSE: 200 MG
     Route: 048
     Dates: start: 20100316, end: 20100330
  2. NEXAVAR [Suspect]
     Dosage: UNIT DOSE: 200 MG
     Route: 048
     Dates: start: 20100413, end: 20100430
  3. PARIET [Concomitant]
     Indication: PROPHYLAXIS AGAINST GASTROINTESTINAL ULCER
     Dosage: UNIT DOSE: 10 MG
     Route: 048
     Dates: start: 20100218
  4. CELECOX [Concomitant]
     Indication: ANALGESIC THERAPY
     Dosage: UNIT DOSE: 100 MG
     Route: 048
     Dates: start: 20100218
  5. TAMSULOSIN HCL [Concomitant]
     Indication: DYSURIA
     Dosage: UNIT DOSE: 0.2 MG
     Route: 048
     Dates: start: 20100218
  6. UBRETID [Concomitant]
     Indication: DYSURIA
     Dosage: UNIT DOSE: 5 MG
     Route: 048
     Dates: start: 20100218
  7. OXYCONTIN [Concomitant]
     Indication: ANALGESIC THERAPY
     Route: 048
     Dates: start: 20100218
  8. SPIRIVA [Concomitant]
     Indication: EMPHYSEMA
     Route: 055
     Dates: start: 20100218
  9. MAGLAX [Concomitant]
     Indication: CONSTIPATION PROPHYLAXIS
     Dosage: UNIT DOSE: 250 MG
     Route: 048
     Dates: start: 20100218
  10. VOLTAREN [Concomitant]
     Indication: ANALGESIC THERAPY
     Dosage: UNIT DOSE: 25 MG
     Route: 054
     Dates: start: 20100218

REACTIONS (1)
  - PNEUMOTHORAX [None]
